FAERS Safety Report 20791424 (Version 1)
Quarter: 2022Q2

REPORT INFORMATION
  Report Type: Spontaneous
  Country: US (occurrence: US)
  Receive Date: 20220505
  Receipt Date: 20220505
  Transmission Date: 20220721
  Serious: No
  Sender: FDA-Public Use
  Company Number: US-Blueprint Medicines Corporation-42

PATIENT
  Age: 65 Year
  Sex: Male

DRUGS (1)
  1. AYVAKIT [Suspect]
     Active Substance: AVAPRITINIB
     Indication: Gastrointestinal stromal tumour
     Route: 048
     Dates: start: 20220131

REACTIONS (5)
  - Malaise [Recovered/Resolved]
  - Asthenia [Recovered/Resolved]
  - Periorbital swelling [Unknown]
  - Rash [Unknown]
  - Liver opacity [Unknown]

NARRATIVE: CASE EVENT DATE: 20220408
